FAERS Safety Report 5451344-6 (Version None)
Quarter: 2007Q3

REPORT INFORMATION
  Report Type: 
  Country: None (occurrence: None)
  Receive Date: 20070913
  Receipt Date: 20070904
  Transmission Date: 20080115
  Serious: Yes (Other)
  Sender: FDA-Public Use
  Company Number: GB-ASTRAZENECA-2006GB01543

PATIENT
  Age: 74 Year
  Sex: Female

DRUGS (9)
  1. BUPIVACAINE [Suspect]
     Indication: LOCAL ANAESTHESIA
     Route: 047
  2. LIDOCAINE [Suspect]
     Indication: LOCAL ANAESTHESIA
     Route: 047
  3. CEFUROXIME [Suspect]
     Indication: POSTOPERATIVE CARE
     Route: 057
  4. CHLORAMPHENICOL [Suspect]
     Indication: CATARACT OPERATION
     Route: 047
  5. HYALURONIDASE [Suspect]
     Indication: LOCAL ANAESTHESIA
     Route: 047
  6. POVIDONE IODINE [Suspect]
     Indication: ENDOPHTHALMITIS
     Route: 047
  7. POVIDONE IODINE [Suspect]
     Indication: PROPHYLAXIS
     Route: 047
  8. PREDNISOLONE [Suspect]
     Indication: CATARACT OPERATION
     Route: 047
  9. PROPARACAINE HCL [Suspect]
     Indication: LOCAL ANAESTHESIA
     Route: 047

REACTIONS (5)
  - CONJUNCTIVAL OEDEMA [None]
  - EXOPHTHALMOS [None]
  - EYE SWELLING [None]
  - PAROPHTHALMIA [None]
  - VISUAL ACUITY REDUCED [None]
